FAERS Safety Report 5471783-7 (Version None)
Quarter: 2007Q3

REPORT INFORMATION
  Report Type: 
  Country: None (occurrence: None)
  Receive Date: 20070928
  Receipt Date: 20070522
  Transmission Date: 20080115
  Serious: No
  Sender: FDA-Public Use
  Company Number: US-BRISTOL-MYERS SQUIBB COMPANY-13788989

PATIENT
  Age: 6 Decade
  Sex: Male

DRUGS (1)
  1. DEFINITY [Suspect]
     Indication: ECHOCARDIOGRAM
     Dates: start: 20070522

REACTIONS (4)
  - ABDOMINAL PAIN [None]
  - BACK PAIN [None]
  - ERYTHEMA [None]
  - NAUSEA [None]
